FAERS Safety Report 5075667-8 (Version None)
Quarter: 2006Q3

REPORT INFORMATION
  Report Type: 
  Country: None (occurrence: None)
  Receive Date: 20060809
  Receipt Date: 20060426
  Transmission Date: 20061208
  Serious: Yes (Life-Threatening, Hospitalization, Other)
  Sender: FDA-Public Use
  Company Number: US-AVENTIS-200616576GDDC

PATIENT
  Age: 50 Year
  Sex: Female

DRUGS (14)
  1. TAXOTERE [Suspect]
     Indication: SQUAMOUS CELL CARCINOMA
     Dosage: DOSE: UNK
     Route: 042
  2. FLUOROURACIL [Suspect]
     Indication: SQUAMOUS CELL CARCINOMA
     Dosage: DOSE: UNK
  3. CISPLATIN [Suspect]
     Indication: SQUAMOUS CELL CARCINOMA
     Dosage: DOSE: UNK
  4. ALLEGRA [Concomitant]
     Dosage: DOSE: UNK
  5. ATIVAN [Concomitant]
     Dosage: DOSE: UNK
  6. EVOXAC [Concomitant]
     Dosage: DOSE: UNK
  7. IBUPROFEN [Concomitant]
     Dosage: DOSE: UNK
  8. LEVOTHYROXINE SODIUM [Concomitant]
     Dosage: DOSE: UNK
  9. NEFAZODONE HCL [Concomitant]
     Dosage: DOSE: UNK
  10. OMEPRAZOLE [Concomitant]
     Dosage: DOSE: UNK
  11. ROBITUSSIN [Concomitant]
     Dosage: DOSE: UNK
  12. ROXICET [Concomitant]
     Dosage: DOSE: UNK
  13. SEROQUEL [Concomitant]
     Dosage: DOSE: UNK
  14. XANAX [Concomitant]
     Dosage: DOSE: UNK

REACTIONS (13)
  - BLOOD CULTURE POSITIVE [None]
  - DYSPNOEA [None]
  - EMPYEMA [None]
  - HYPERTENSION [None]
  - LARYNGEAL OEDEMA [None]
  - LOCAL SWELLING [None]
  - ORAL CANDIDIASIS [None]
  - PHARYNGOLARYNGEAL PAIN [None]
  - PLEURITIC PAIN [None]
  - PULMONARY EMBOLISM [None]
  - SOFT TISSUE NECROSIS [None]
  - STRIDOR [None]
  - TACHYCARDIA [None]
